FAERS Safety Report 16234021 (Version 1)
Quarter: 2019Q2

REPORT INFORMATION
  Report Type: Spontaneous
  Country: FR (occurrence: FR)
  Receive Date: 20190424
  Receipt Date: 20190424
  Transmission Date: 20190711
  Serious: Yes (Other)
  Sender: FDA-Public Use
  Company Number: FR-ROCHE-2307644

PATIENT
  Sex: Female

DRUGS (1)
  1. LUCENTIS [Suspect]
     Active Substance: RANIBIZUMAB
     Indication: DIABETIC RETINOPATHY
     Dosage: UNK
     Route: 065
     Dates: start: 201812

REACTIONS (3)
  - Off label use [Unknown]
  - Intentional product use issue [Unknown]
  - Renal infarct [Unknown]

NARRATIVE: CASE EVENT DATE: 201902
